FAERS Safety Report 13664895 (Version 2)
Quarter: 2017Q3

REPORT INFORMATION
  Report Type: Report from Study
  Country: IL (occurrence: IL)
  Receive Date: 20170619
  Receipt Date: 20170707
  Transmission Date: 20171127
  Serious: Yes (Other)
  Sender: FDA-Public Use
  Company Number: PHHY2017IL088543

PATIENT
  Sex: Female

DRUGS (3)
  1. SANDOSTATIN LAR DEPOT [Suspect]
     Active Substance: OCTREOTIDE ACETATE
     Dosage: FETAL DRUG EXPOSURE VIA FATHER: 30 MG QMO
     Route: 050
     Dates: start: 20170511
  2. SANDOSTATIN LAR DEPOT [Suspect]
     Active Substance: OCTREOTIDE ACETATE
     Indication: ACROMEGALY
     Dosage: FETAL DRUG EXPOSURE VIA FATHER: 30 MG QMO
     Route: 050
     Dates: start: 20120503
  3. SANDOSTATIN LAR DEPOT [Suspect]
     Active Substance: OCTREOTIDE ACETATE
     Dosage: FETAL DRUG EXPOSURE VIA FATHER: 30 MG QMO
     Route: 050
     Dates: start: 20170611

REACTIONS (2)
  - Abortion spontaneous [Unknown]
  - Paternal exposure during pregnancy [Unknown]
